FAERS Safety Report 11197474 (Version 1)
Quarter: 2015Q2

REPORT INFORMATION
  Report Type: Spontaneous
  Country: IT (occurrence: IT)
  Receive Date: 20150617
  Receipt Date: 20150617
  Transmission Date: 20150821
  Serious: Yes (Other)
  Sender: FDA-Public Use
  Company Number: IT-PFIZER INC-2015194439

PATIENT
  Age: 70 Year
  Sex: Male

DRUGS (1)
  1. CAVERJECT [Suspect]
     Active Substance: ALPROSTADIL
     Dosage: 10 ?G FRACTIONATED IN 3 ADMINISTRATION

REACTIONS (6)
  - Erection increased [Unknown]
  - Prostatic specific antigen increased [Unknown]
  - Multiple use of single-use product [Unknown]
  - Penis disorder [Unknown]
  - Drug ineffective [Unknown]
  - Injection site pain [Unknown]
